FAERS Safety Report 8023634-4 (Version None)
Quarter: 2012Q1

REPORT INFORMATION
  Report Type: 
  Country: None (occurrence: None)
  Receive Date: 20120105
  Receipt Date: 20111229
  Transmission Date: 20120608
  Serious: Yes (Hospitalization)
  Sender: FDA-Public Use
  Company Number: US-SHIRE-ALL1-2011-05153

PATIENT
  Sex: Female
  Weight: 49.887 kg

DRUGS (9)
  1. ZOLOFT [Concomitant]
     Indication: DEPRESSION
     Dosage: 200 MG, 1X/DAY:QD (TWO 100 MG TABLETS)
     Route: 048
  2. ADDERALL XR 10 [Suspect]
     Indication: ATTENTION DEFICIT/HYPERACTIVITY DISORDER
     Dosage: 30 MG, 4X/DAY:QID
     Route: 048
     Dates: start: 20020101
  3. ADDERALL XR 10 [Suspect]
     Dosage: 20 MG, 4X/DAY:QID
     Route: 048
  4. ADDERALL XR 10 [Suspect]
     Dosage: 20 MG, 4X/DAY:QID
     Route: 048
  5. NEURONTIN [Concomitant]
     Indication: PRODUCT USED FOR UNKNOWN INDICATION
     Dosage: UNK, UNKNOWN
     Route: 065
  6. XANAX [Concomitant]
     Indication: PRODUCT USED FOR UNKNOWN INDICATION
     Dosage: UNK, AS REQ'D
     Route: 048
  7. TRAZODONE HCL [Concomitant]
     Indication: DEPRESSION
  8. TRAZODONE HCL [Concomitant]
     Indication: SLEEP DISORDER
     Dosage: 100 MG, 1X/DAY:QD (TWO 100 MG  TABLETS)
     Route: 048
  9. WELLBUTRIN [Concomitant]
     Indication: DEPRESSION
     Dosage: 300 MG, 1X/DAY:QD (TWO 150 MG TABLETS)
     Route: 048

REACTIONS (5)
  - BRAIN INJURY [None]
  - DRUG EFFECT INCREASED [None]
  - OVERDOSE [None]
  - AMNESIA [None]
  - INAPPROPRIATE SCHEDULE OF DRUG ADMINISTRATION [None]
